FAERS Safety Report 20964152 (Version 5)
Quarter: 2023Q2

REPORT INFORMATION
  Report Type: Spontaneous
  Country: PL (occurrence: PL)
  Receive Date: 20220615
  Receipt Date: 20230426
  Transmission Date: 20230722
  Serious: Yes (Hospitalization, Other)
  Sender: FDA-Public Use
  Company Number: PL-BAUSCH-BL-2022-011122

PATIENT
  Age: 31 Year
  Sex: Male

DRUGS (36)
  1. MORPHINE SULFATE [Suspect]
     Active Substance: MORPHINE SULFATE
     Indication: Analgesic therapy
     Dosage: 10 MILLIGRAM
     Route: 042
  2. DICLOFENAC SODIUM [Interacting]
     Active Substance: DICLOFENAC SODIUM
     Indication: Back pain
     Dosage: 150 MILLIGRAM, Q24H
     Route: 065
  3. DICLOFENAC SODIUM [Interacting]
     Active Substance: DICLOFENAC SODIUM
     Indication: Sacral pain
  4. ATORVASTATIN CALCIUM [Interacting]
     Active Substance: ATORVASTATIN CALCIUM
     Indication: Dyslipidaemia
     Dosage: 40 MILLIGRAM
     Route: 065
  5. SERTRALINE HYDROCHLORIDE [Interacting]
     Active Substance: SERTRALINE HYDROCHLORIDE
     Indication: Insomnia
     Dosage: 50 MG, QD IN THE MORNING
     Route: 065
  6. SERTRALINE HYDROCHLORIDE [Interacting]
     Active Substance: SERTRALINE HYDROCHLORIDE
     Indication: Anxiety
  7. SERTRALINE HYDROCHLORIDE [Interacting]
     Active Substance: SERTRALINE HYDROCHLORIDE
     Indication: Affective disorder
  8. SERTRALINE HYDROCHLORIDE [Interacting]
     Active Substance: SERTRALINE HYDROCHLORIDE
     Indication: Depression
  9. SERTRALINE HYDROCHLORIDE [Interacting]
     Active Substance: SERTRALINE HYDROCHLORIDE
     Indication: Affective disorder
  10. SERTRALINE HYDROCHLORIDE [Interacting]
     Active Substance: SERTRALINE HYDROCHLORIDE
     Indication: Depression
  11. RAMIPRIL [Suspect]
     Active Substance: RAMIPRIL
     Indication: Hypertension
     Dosage: 10 MG
     Route: 065
  12. RAMIPRIL [Suspect]
     Active Substance: RAMIPRIL
     Indication: Product used for unknown indication
  13. RAMIPRIL [Suspect]
     Active Substance: RAMIPRIL
     Indication: Hypertension
  14. ALPRAZOLAM [Interacting]
     Active Substance: ALPRAZOLAM
     Indication: Affective disorder
     Dosage: 1 MILLIGRAM, QD, (1 MG AT BEDTIME)
     Route: 065
  15. ALPRAZOLAM [Interacting]
     Active Substance: ALPRAZOLAM
     Indication: Anxiety
  16. ALPRAZOLAM [Interacting]
     Active Substance: ALPRAZOLAM
     Indication: Insomnia
  17. ALPRAZOLAM [Interacting]
     Active Substance: ALPRAZOLAM
     Indication: Affective disorder
  18. TADALAFIL [Interacting]
     Active Substance: TADALAFIL
     Indication: Erectile dysfunction
     Dosage: 10 MG, PRN
     Route: 048
  19. TADALAFIL [Interacting]
     Active Substance: TADALAFIL
     Indication: Anorgasmia
     Dosage: 10 MILLIGRAM, AS NEEDED
     Route: 065
  20. ACETAMINOPHEN\TRAMADOL HYDROCHLORIDE [Suspect]
     Active Substance: ACETAMINOPHEN\TRAMADOL HYDROCHLORIDE
     Indication: Back pain
     Dosage: 1 DOSAGE FORM, Q12H (37.5 / 325 MG TWICE)
     Route: 065
  21. ACETAMINOPHEN\TRAMADOL HYDROCHLORIDE [Suspect]
     Active Substance: ACETAMINOPHEN\TRAMADOL HYDROCHLORIDE
     Dosage: UNK
     Route: 042
  22. ACETAMINOPHEN\TRAMADOL [Suspect]
     Active Substance: ACETAMINOPHEN\TRAMADOL
     Indication: Back pain
     Dosage: UNK
     Route: 042
  23. ACETAMINOPHEN\TRAMADOL [Suspect]
     Active Substance: ACETAMINOPHEN\TRAMADOL
     Indication: Sacral pain
     Dosage: BID (37.5 / 325 MG TWICE A DAY)
     Route: 065
  24. ACETAMINOPHEN\TRAMADOL [Suspect]
     Active Substance: ACETAMINOPHEN\TRAMADOL
     Indication: Back pain
  25. KETOPROFEN [Suspect]
     Active Substance: KETOPROFEN
     Indication: Analgesic therapy
     Dosage: 100 MILLIGRAM
     Route: 042
  26. FUROSEMIDE [Concomitant]
     Active Substance: FUROSEMIDE
     Indication: Cardiac disorder
     Dosage: UNK
     Route: 065
  27. FUROSEMIDE [Concomitant]
     Active Substance: FUROSEMIDE
     Indication: Cardiac disorder
  28. METOPROLOL [Concomitant]
     Active Substance: METOPROLOL
     Indication: Cardiac disorder
     Dosage: UNK
     Route: 065
  29. VALPROATE SODIUM [Concomitant]
     Active Substance: VALPROATE SODIUM
     Indication: Back pain
     Dosage: UNKNOWN
     Route: 065
  30. AGOMELATINE [Concomitant]
     Active Substance: AGOMELATINE
     Indication: Depression
     Dosage: UNK
     Route: 065
  31. MAGNESIUM SULFATE [Concomitant]
     Active Substance: MAGNESIUM SULFATE
     Indication: Back pain
     Dosage: UNK
     Route: 065
  32. LORNOXICAM [Concomitant]
     Active Substance: LORNOXICAM
     Indication: Back pain
     Route: 065
  33. BUPRENORPHINE [Concomitant]
     Active Substance: BUPRENORPHINE
     Indication: Back pain
     Dosage: TRANSDERMAL THERAPEUTIC SYSTEM (TTS) AT 17.5 UG/H (HALF A PATCH, 35 UG/H) REPLACED EVERY 72 HOURS
     Route: 065
  34. BUPRENORPHINE [Concomitant]
     Active Substance: BUPRENORPHINE
     Indication: Sleep disorder
     Dosage: TITRATED DOSE
     Route: 065
  35. KETAMINE [Concomitant]
     Active Substance: KETAMINE
     Indication: Back pain
     Dosage: UNK
     Route: 065
  36. KETOPROFEN [Concomitant]
     Active Substance: KETOPROFEN
     Indication: Back pain
     Dosage: 100 MILLIGRAM
     Route: 042

REACTIONS (21)
  - Erectile dysfunction [Recovered/Resolved]
  - Drug level increased [Unknown]
  - Drug interaction [Recovered/Resolved]
  - Drug interaction [Unknown]
  - Blood pressure increased [Recovering/Resolving]
  - Blood pressure increased [Unknown]
  - Back pain [Recovered/Resolved]
  - Back pain [Recovered/Resolved]
  - Tachypnoea [Recovering/Resolving]
  - Tachycardia [Recovering/Resolving]
  - Drug ineffective [Unknown]
  - Hyperaesthesia [Recovered/Resolved]
  - Anorgasmia [Recovered/Resolved]
  - Sacral pain [Recovered/Resolved]
  - Product use in unapproved indication [Unknown]
  - Pain [Unknown]
  - Depression [Unknown]
  - Neuralgia [Recovered/Resolved]
  - Condition aggravated [Recovered/Resolved]
  - Affective disorder [Recovering/Resolving]
  - Insomnia [Recovering/Resolving]
